FAERS Safety Report 7640207-3 (Version None)
Quarter: 2011Q3

REPORT INFORMATION
  Report Type: 
  Country: None (occurrence: None)
  Receive Date: 20110728
  Receipt Date: 20080121
  Transmission Date: 20111222
  Serious: Yes (Other)
  Sender: FDA-Public Use
  Company Number: US-BAYER-200812022NA

PATIENT
  Age: 80 Year
  Sex: Female
  Weight: 90.703 kg

DRUGS (14)
  1. HUMALOG [Concomitant]
     Dosage: 5 UNITS IN THE MORNING AND EVENING
  2. HEPARIN [Concomitant]
     Dosage: 35,000 UNITS
     Route: 042
     Dates: start: 20030725
  3. PROZAC [Concomitant]
     Dosage: 20 MG, QD
     Route: 048
  4. ROCEPHIN [Concomitant]
     Dosage: 2 G, UNK
     Route: 042
     Dates: start: 20030725, end: 20030725
  5. TRASYLOL [Suspect]
     Indication: MITRAL VALVE REPAIR
     Dosage: TEST DOSE - 3CC
     Route: 042
     Dates: start: 20030725, end: 20030725
  6. TRASYLOL [Suspect]
     Indication: CORONARY ARTERY BYPASS
     Dosage: NO LOADING DOSE SPECIFIED, 50ML/HR INFUSION
     Route: 042
     Dates: start: 20030725, end: 20030725
  7. CARDIZEM [Concomitant]
     Dosage: 240 MG, QD
     Route: 048
  8. INSULIN [Concomitant]
     Dosage: 40 UNITS IN THEMORNING/ 20 UNITS AT HOURS OF SLEEP
  9. HUMULIN N [INSULIN HUMAN] [Concomitant]
     Dosage: 40 UNITS IN MORNING AND 20 UNITS IN EVENING
  10. LASIX [Concomitant]
     Dosage: 80MG
  11. PROTAMINE SULFATE [Concomitant]
     Dosage: 2CC
     Route: 042
     Dates: start: 20030725
  12. RED BLOOD CELLS [Concomitant]
     Dosage: UNK
     Dates: start: 20030725
  13. MIDAZOLAM HCL [Concomitant]
     Dosage: UNK
     Route: 042
     Dates: start: 20030725
  14. PLASMA [Concomitant]
     Dosage: UNK
     Dates: start: 20030725

REACTIONS (7)
  - FEAR [None]
  - PAIN [None]
  - RENAL FAILURE [None]
  - INJURY [None]
  - DEPRESSION [None]
  - ANXIETY [None]
  - ANHEDONIA [None]
